FAERS Safety Report 5877550-4 (Version None)
Quarter: 2008Q3

REPORT INFORMATION
  Report Type: 
  Country: None (occurrence: None)
  Receive Date: 20080911
  Receipt Date: 20080901
  Transmission Date: 20090109
  Serious: Yes (Hospitalization)
  Sender: FDA-Public Use
  Company Number: PHBS2008AT05657

PATIENT
  Age: 45 Year
  Sex: Female

DRUGS (4)
  1. VOLTAREN [Suspect]
     Indication: UVEITIS
  2. VOLTAREN [Suspect]
     Indication: RETINAL DETACHMENT
  3. ULTRACORTENOL EYE DROPS (NVO) [Suspect]
     Indication: UVEITIS
  4. ULTRACORTENOL EYE DROPS (NVO) [Suspect]
     Indication: RETINAL DETACHMENT

REACTIONS (9)
  - ABNORMAL SENSATION IN EYE [None]
  - CAT SCRATCH DISEASE [None]
  - HYPERSENSITIVITY [None]
  - MACULAR OEDEMA [None]
  - OCULAR HYPERAEMIA [None]
  - PHOTOSENSITIVITY REACTION [None]
  - RETINAL DETACHMENT [None]
  - UVEITIS [None]
  - VISUAL ACUITY REDUCED [None]
